FAERS Safety Report 6314621-2 (Version None)
Quarter: 2009Q3

REPORT INFORMATION
  Report Type: 
  Country: None (occurrence: None)
  Receive Date: 20090819
  Receipt Date: 20090812
  Transmission Date: 20100115
  Serious: No
  Sender: FDA-Public Use
  Company Number: US-JNJFOC-20090804202

PATIENT
  Sex: Female
  Weight: 53.52 kg

DRUGS (11)
  1. FENTANYL TRANSDERMAL SYSTEM [Suspect]
     Indication: BACK PAIN
     Route: 062
  2. SYNTHROID [Concomitant]
     Indication: THYROID DISORDER
     Route: 048
  3. BONIVA [Concomitant]
     Indication: BONE DISORDER
     Route: 048
  4. DEPAKOTE [Concomitant]
     Route: 048
  5. PREDNISONE [Concomitant]
     Indication: MYALGIA
     Route: 048
  6. HYDROCHLOROTHIAZIDE [Concomitant]
     Indication: SWELLING
     Route: 048
  7. ESTROPIPATE [Concomitant]
     Indication: HORMONE LEVEL ABNORMAL
     Route: 048
  8. LEXAPRO [Concomitant]
     Indication: DEPRESSION
     Route: 048
  9. RESTASIS [Concomitant]
     Indication: DRY EYE
     Route: 047
  10. NAMENDA [Concomitant]
     Indication: MEMORY IMPAIRMENT
     Route: 048
  11. CYANOCOBALAMIN [Concomitant]
     Indication: NUTRITIONAL SUPPORT
     Route: 045

REACTIONS (1)
  - INCORRECT DRUG ADMINISTRATION DURATION [None]
